FAERS Safety Report 19808648 (Version 2)
Quarter: 2021Q3

REPORT INFORMATION
  Report Type: Spontaneous
  Country: NP (occurrence: NP)
  Receive Date: 20210908
  Receipt Date: 20210916
  Transmission Date: 20211014
  Serious: Yes (Death, Other)
  Sender: FDA-Public Use
  Company Number: NP-BRISTOL-MYERS SQUIBB COMPANY-BMS-2021-090095

PATIENT
  Age: 23 Year
  Sex: Male

DRUGS (1)
  1. SPRYCEL [Suspect]
     Active Substance: DASATINIB
     Indication: ACUTE LYMPHOCYTIC LEUKAEMIA
     Dosage: 140MG (2 X 70MG TABLETS)
     Route: 065

REACTIONS (6)
  - Thrombocytopenia [Fatal]
  - Acute kidney injury [Fatal]
  - Transaminases increased [Fatal]
  - Pulmonary embolism [Fatal]
  - Hyperkalaemia [Fatal]
  - Pleural effusion [Fatal]
